FAERS Safety Report 16963914 (Version 2)
Quarter: 2019Q4

REPORT INFORMATION
  Report Type: Spontaneous
  Country: DE (occurrence: DE)
  Receive Date: 20191026
  Receipt Date: 20191223
  Transmission Date: 20200122
  Serious: Yes (Other)
  Sender: FDA-Public Use
  Company Number: NVSC2019DE015508

PATIENT
  Sex: Female

DRUGS (1)
  1. REVOLADE [Suspect]
     Active Substance: ELTROMBOPAG
     Indication: IMMUNE THROMBOCYTOPENIC PURPURA
     Dosage: 50 MG, QD
     Route: 065
     Dates: start: 2018

REACTIONS (5)
  - Platelet count abnormal [Unknown]
  - Venous thrombosis [Unknown]
  - Headache [Unknown]
  - Antiphospholipid syndrome [Unknown]
  - Thrombosis [Unknown]

NARRATIVE: CASE EVENT DATE: 2018
